FAERS Safety Report 6160288-6 (Version None)
Quarter: 2009Q2

REPORT INFORMATION
  Report Type: 
  Country: None (occurrence: None)
  Receive Date: 20090416
  Receipt Date: 20090408
  Transmission Date: 20091009
  Serious: Yes (Congenital Anomaly, Other)
  Sender: FDA-Public Use
  Company Number: ADE2009-0549

PATIENT
  Age: 12 Week
  Sex: Male

DRUGS (7)
  1. AMOXICILLIN [Suspect]
     Dosage: 250MG, TID, TRANSPLACENT
     Route: 064
     Dates: start: 20080707
  2. CODEINE SUL TAB [Suspect]
     Dosage: 30MG, PRN, TRANSPLACENT.
     Route: 064
  3. FERROUS SULFATE TAB [Suspect]
     Dosage: 200MG - BID - TRANSPLACENT
     Route: 064
     Dates: start: 20081006
  4. PRIADEL [Suspect]
     Indication: BIPOLAR DISORDER
     Dosage: 1200MG - TRANSPLACENT
     Route: 064
     Dates: start: 20050101
  5. QUETIAPINE FUMARATE [Suspect]
     Indication: BIPOLAR DISORDER
     Dosage: 100MG - TRANSPLACENT.
     Route: 064
     Dates: start: 20080421, end: 20080616
  6. REBOXETINE [Suspect]
     Indication: BIPOLAR DISORDER
     Dosage: 4MG - TRANSPLACENT.
     Route: 064
     Dates: start: 20050101, end: 20080529
  7. VENLAFAXINE HCL [Suspect]
     Indication: BIPOLAR DISORDER
     Dosage: 150MG - TRANSPLACENT.
     Route: 064
     Dates: start: 20050624

REACTIONS (2)
  - MATERNAL DRUGS AFFECTING FOETUS [None]
  - PIERRE ROBIN SYNDROME [None]
